FAERS Safety Report 10456088 (Version 1)
Quarter: 2014Q3

REPORT INFORMATION
  Report Type: Spontaneous
  Country: US (occurrence: GB)
  Receive Date: 20140916
  Receipt Date: 20140916
  Transmission Date: 20150326
  Serious: Yes (Other)
  Sender: FDA-Public Use
  Company Number: US-SA-2014SA126491

PATIENT
  Age: 10 Year
  Sex: Female

DRUGS (1)
  1. DESMOTABS [Suspect]
     Active Substance: DESMOPRESSIN
     Indication: ENURESIS
     Route: 048
     Dates: start: 20121012, end: 20140609

REACTIONS (2)
  - Epistaxis [Recovering/Resolving]
  - Menorrhagia [Unknown]
